FAERS Safety Report 11701538 (Version 4)
Quarter: 2015Q4

REPORT INFORMATION
  Report Type: Spontaneous
  Country: US (occurrence: US)
  Receive Date: 20151105
  Receipt Date: 20151214
  Transmission Date: 20160304
  Serious: Yes (Life-Threatening, Hospitalization, Other)
  Sender: FDA-Public Use
  Company Number: US-GILEAD-2015-0180087

PATIENT
  Age: 53 Year
  Sex: Male
  Weight: 122.4 kg

DRUGS (9)
  1. VIIBRYD [Concomitant]
     Active Substance: VILAZODONE HYDROCHLORIDE
     Indication: DEPRESSION
  2. HARVONI [Suspect]
     Active Substance: LEDIPASVIR\SOFOSBUVIR
     Indication: HEPATITIS C
     Dosage: UNK
     Route: 048
     Dates: start: 20150910, end: 20151028
  3. DURAGESIC [Concomitant]
     Active Substance: FENTANYL
  4. MORPHINE [Concomitant]
     Active Substance: MORPHINE
     Indication: PAIN
  5. KLONOPIN [Concomitant]
     Active Substance: CLONAZEPAM
     Indication: ANXIETY
  6. RITALIN [Concomitant]
     Active Substance: METHYLPHENIDATE HYDROCHLORIDE
  7. FENTANYL. [Concomitant]
     Active Substance: FENTANYL
     Indication: PAIN
  8. NEURONTIN [Concomitant]
     Active Substance: GABAPENTIN
  9. ANUSOL-HC                          /00028604/ [Concomitant]
     Indication: HAEMORRHOIDS

REACTIONS (4)
  - Leukocytosis [Unknown]
  - Anger [Unknown]
  - Self injurious behaviour [Recovering/Resolving]
  - Suicidal ideation [Recovering/Resolving]

NARRATIVE: CASE EVENT DATE: 2015
